FAERS Safety Report 5326261-2 (Version None)
Quarter: 2007Q2

REPORT INFORMATION
  Report Type: 
  Country: None (occurrence: None)
  Receive Date: 20070514
  Receipt Date: 20070514
  Transmission Date: 20071010
  Serious: No
  Sender: FDA-Public Use
  Company Number: None

PATIENT
  Age: 23 Year
  Sex: Female

DRUGS (1)
  1. ESTROSTEP [Suspect]
     Dosage: CYCLIC

REACTIONS (1)
  - DEEP VEIN THROMBOSIS [None]
